FAERS Safety Report 15203035 (Version 7)
Quarter: 2019Q4

REPORT INFORMATION
  Report Type: Report from Study
  Country: AU (occurrence: AU)
  Receive Date: 20180726
  Receipt Date: 20191101
  Transmission Date: 20200122
  Serious: Yes (Hospitalization, Other)
  Sender: FDA-Public Use
  Company Number: AU-JNJFOC-20180726529

PATIENT
  Age: 66 Year
  Sex: Female

DRUGS (1)
  1. IBRUTINIB [Suspect]
     Active Substance: IBRUTINIB
     Indication: CHRONIC LYMPHOCYTIC LEUKAEMIA
     Route: 048
     Dates: start: 20170301, end: 20181101

REACTIONS (4)
  - Ulcer haemorrhage [Unknown]
  - Fatigue [Unknown]
  - Adverse event [Unknown]
  - Leiomyosarcoma metastatic [Unknown]

NARRATIVE: CASE EVENT DATE: 20180301
